FAERS Safety Report 8978993 (Version 3)
Quarter: 2014Q2

REPORT INFORMATION
  Report Type: Spontaneous
  Country: US (occurrence: US)
  Receive Date: 20121221
  Receipt Date: 20140508
  Transmission Date: 20141212
  Serious: No
  Sender: FDA-Public Use
  Company Number: US-009507513-1212USA007634

PATIENT
  Sex: Male

DRUGS (2)
  1. PROPECIA [Suspect]
     Indication: ANDROGENETIC ALOPECIA
     Dosage: 1 MG, UNK
     Route: 048
     Dates: start: 20051109, end: 201108
  2. FINASTERIDE [Suspect]
     Indication: ALOPECIA
     Dosage: 1 MG, UNK
     Route: 048

REACTIONS (13)
  - Prostatic pain [Unknown]
  - Sexual dysfunction [Not Recovered/Not Resolved]
  - Loss of libido [Unknown]
  - Personality disorder [Unknown]
  - Erectile dysfunction [Unknown]
  - Testicular pain [Unknown]
  - Fatigue [Unknown]
  - Memory impairment [Unknown]
  - Mental disorder [Unknown]
  - Mental impairment [Unknown]
  - Sleep disorder [Unknown]
  - Emotional disorder [Unknown]
  - Apathy [Unknown]
